FAERS Safety Report 7039924-8 (Version None)
Quarter: 2010Q4

REPORT INFORMATION
  Report Type: 
  Country: None (occurrence: None)
  Receive Date: 20101012
  Receipt Date: 20100930
  Transmission Date: 20110411
  Serious: Yes (Other)
  Sender: FDA-Public Use
  Company Number: US-PFIZER INC-2010118164

PATIENT
  Sex: Male
  Weight: 79.365 kg

DRUGS (8)
  1. NEURONTIN [Suspect]
     Indication: NEUROPATHY PERIPHERAL
     Dosage: UNK
     Route: 048
     Dates: start: 20020101, end: 20030301
  2. NEURONTIN [Suspect]
     Dosage: UNK
     Dates: start: 20020101
  3. OXYCODONE [Concomitant]
     Indication: PAIN
     Dosage: 5 MG, 2X/DAY
     Route: 048
     Dates: start: 20010801
  4. LISINOPRIL [Concomitant]
     Indication: HYPERTENSION
     Dosage: 7.5 MG, 1X/DAY
     Route: 048
     Dates: start: 20050101
  5. ALLOPURINOL [Concomitant]
     Indication: BLOOD URIC ACID ABNORMAL
     Dosage: 300 MG, 1X/DAY
     Route: 048
     Dates: start: 20050101
  6. ALLOPURINOL [Concomitant]
     Indication: PROPHYLAXIS
  7. CALCIUM [Concomitant]
     Indication: BONE DISORDER
     Dosage: 200 MG, 1X/DAY
     Route: 048
     Dates: start: 20100301
  8. VITAMIN D [Concomitant]
     Indication: BONE DISORDER
     Dosage: 800 IU, UNK
     Dates: start: 20100301

REACTIONS (1)
  - DRUG WITHDRAWAL SYNDROME [None]
